FAERS Safety Report 8250528-1 (Version None)
Quarter: 2012Q2

REPORT INFORMATION
  Report Type: 
  Country: None (occurrence: None)
  Receive Date: 20120402
  Receipt Date: 20120328
  Transmission Date: 20120825
  Serious: Yes (Other)
  Sender: FDA-Public Use
  Company Number: US-PFIZER INC-2012080090

PATIENT
  Sex: Female
  Weight: 74.8 kg

DRUGS (2)
  1. PREMARIN [Suspect]
     Indication: HYSTERECTOMY
     Dosage: 6.25 MG, DAILY, LAST 26 YEARS
     Route: 048
  2. IBUPROFEN [Concomitant]
     Indication: GOUT
     Dosage: 500 MG, AS NEEDED
     Route: 048

REACTIONS (6)
  - WITHDRAWAL SYNDROME [None]
  - HEADACHE [None]
  - MALAISE [None]
  - MUSCLE DISORDER [None]
  - APPARENT DEATH [None]
  - PALPITATIONS [None]
